FAERS Safety Report 8924749 (Version 3)
Quarter: 2013Q2

REPORT INFORMATION
  Report Type: Spontaneous
  Country: US (occurrence: US)
  Receive Date: 20121126
  Receipt Date: 20130430
  Transmission Date: 20140414
  Serious: Yes (Hospitalization, Disabling, Other)
  Sender: FDA-Public Use
  Company Number: US-009507513-1211USA008147

PATIENT
  Sex: Female

DRUGS (2)
  1. FOSAMAX [Suspect]
     Indication: OSTEOPOROSIS
     Dosage: 35 MG, UNK
     Route: 048
     Dates: end: 2007
  2. FOSAMAX [Suspect]
     Indication: OSTEOPOROSIS

REACTIONS (11)
  - Femur fracture [Unknown]
  - Foot fracture [Unknown]
  - Osteoporosis [Unknown]
  - Multiple fractures [Unknown]
  - Low turnover osteopathy [Unknown]
  - Femur fracture [Unknown]
  - Impaired healing [Unknown]
  - Fracture nonunion [Recovered/Resolved]
  - Oesophageal disorder [Unknown]
  - Vitamin D deficiency [Unknown]
  - Calcium deficiency [Unknown]
